FAERS Safety Report 8867833 (Version 1)
Quarter: 2012Q4

REPORT INFORMATION
  Report Type: 
  Country: US (occurrence: US)
  Receive Date: 20121026
  Receipt Date: 20121026
  Transmission Date: 20130627
  Serious: No
  Sender: FDA-Public Use
  Company Number: US-AMGEN-USASP2012041395

PATIENT
  Age: 50 Year
  Sex: Female
  Weight: 61.22 kg

DRUGS (1)
  1. ENBREL [Suspect]
     Indication: RHEUMATOID ARTHRITIS
     Dosage: 50 mg, qwk
     Route: 058
     Dates: start: 20120330

REACTIONS (4)
  - Pain [Unknown]
  - Fatigue [Unknown]
  - Anxiety [Unknown]
  - Insomnia [Unknown]
